FAERS Safety Report 22612583 (Version 1)
Quarter: 2023Q2

REPORT INFORMATION
  Report Type: Report from Study
  Country: US (occurrence: US)
  Receive Date: 20230617
  Receipt Date: 20230617
  Transmission Date: 20230721
  Serious: Yes (Hospitalization, Other)
  Sender: FDA-Public Use
  Company Number: US-UCBSA-2022028115

PATIENT
  Age: 51 Year
  Sex: Male
  Weight: 87.1 kg

DRUGS (6)
  1. LACOSAMIDE [Suspect]
     Active Substance: LACOSAMIDE
     Indication: Partial seizures
     Dosage: 300 MILLIGRAM, 2X/DAY (BID)
     Route: 048
  2. LACOSAMIDE [Suspect]
     Active Substance: LACOSAMIDE
     Dosage: 200 MILLIGRAM, 3X/DAY (TID)
     Route: 048
     Dates: start: 20221025
  3. LACOSAMIDE [Suspect]
     Active Substance: LACOSAMIDE
     Dosage: 300 MILLIGRAM (150MG 2 TABLETS), 2X/DAY (BID)
     Route: 048
     Dates: start: 20221027
  4. LACOSAMIDE [Suspect]
     Active Substance: LACOSAMIDE
     Dosage: 200 MILLIGRAM, 3X/DAY (TID)
     Route: 048
     Dates: start: 20230531
  5. KEPPRA [Suspect]
     Active Substance: LEVETIRACETAM
     Indication: Product used for unknown indication
     Dosage: 1500 MILLIGRAM, 2X/DAY (BID)
  6. KEPPRA [Suspect]
     Active Substance: LEVETIRACETAM
     Dosage: 1500 MILLIGRAM, 2X/DAY (BID)
     Dates: start: 20230531

REACTIONS (8)
  - Seizure [Unknown]
  - Fall [Unknown]
  - Subarachnoid haemorrhage [Unknown]
  - Subdural haematoma [Unknown]
  - Stress [Not Recovered/Not Resolved]
  - Off label use [Unknown]
  - Prescribed overdose [Unknown]
  - Product use issue [Unknown]

NARRATIVE: CASE EVENT DATE: 20221025
